FAERS Safety Report 9186925 (Version 1)
Quarter: 2013Q1

REPORT INFORMATION
  Report Type: Spontaneous
  Country: FR (occurrence: FR)
  Receive Date: 20130325
  Receipt Date: 20130325
  Transmission Date: 20140127
  Serious: Yes (Life-Threatening)
  Sender: FDA-Public Use
  Company Number: FR-GLAXOSMITHKLINE-B0840216A

PATIENT
  Age: 41 Year
  Sex: Female

DRUGS (3)
  1. ZINNAT [Suspect]
     Indication: OROPHARYNGEAL PAIN
     Dosage: 1UNIT SINGLE DOSE
     Route: 048
     Dates: start: 20110121, end: 20110121
  2. CHOCOLATE [Concomitant]
  3. PEANUTS [Concomitant]

REACTIONS (8)
  - Anaphylactic shock [Recovered/Resolved]
  - Feeling hot [Recovered/Resolved]
  - Face oedema [Recovered/Resolved]
  - Dysphonia [Recovered/Resolved]
  - Dysphagia [Recovered/Resolved]
  - Angioedema [Recovered/Resolved]
  - Tachycardia [Recovered/Resolved]
  - Blood pressure decreased [Recovered/Resolved]
